FAERS Safety Report 5892900-0 (Version None)
Quarter: 2008Q3

REPORT INFORMATION
  Report Type: 
  Country: None (occurrence: None)
  Receive Date: 20080923
  Receipt Date: 20080917
  Transmission Date: 20090109
  Serious: Yes (Other)
  Sender: FDA-Public Use
  Company Number: JP-AVENTIS-200812944JP

PATIENT
  Sex: Male

DRUGS (1)
  1. CLEXANE [Suspect]
     Dosage: DOSE: 2000 IU
     Route: 058
     Dates: start: 20080906, end: 20080908

REACTIONS (3)
  - HAEMOGLOBIN DECREASED [None]
  - JOINT SWELLING [None]
  - THROMBOCYTOPENIA [None]
